FAERS Safety Report 8844497 (Version 1)
Quarter: 2012Q4

REPORT INFORMATION
  Report Type: 
  Country: US (occurrence: US)
  Receive Date: 20121017
  Receipt Date: 20121017
  Transmission Date: 20130627
  Serious: No
  Sender: FDA-Public Use
  Company Number: US-BAYER-2012-108367

PATIENT
  Age: 87 Year
  Sex: Male
  Weight: 54.42 kg

DRUGS (7)
  1. ALEVE CAPLET/TABLET,MIDOL EXTENDED RELIEF CAPLET [Suspect]
     Indication: BACK PAIN
     Dosage: 1 DF, QD
     Dates: start: 2012
  2. BAYER ASPIRIN REGIMEN ADULT LOW STRENGTH [Concomitant]
     Indication: ISCHAEMIC HEART DISEASE PROPHYLAXIS
  3. TERAZOSIN [Concomitant]
  4. TRIAMTERENE [Concomitant]
  5. ATENOLOL [Concomitant]
  6. AVASTIN [Concomitant]
  7. AVODART [Concomitant]

REACTIONS (1)
  - Back pain [None]
